FAERS Safety Report 9469953 (Version 1)
Quarter: 2013Q3

REPORT INFORMATION
  Report Type: Spontaneous
  Country: FR (occurrence: FR)
  Receive Date: 20130822
  Receipt Date: 20130822
  Transmission Date: 20140515
  Serious: Yes (Hospitalization)
  Sender: FDA-Public Use
  Company Number: PHHY2013FR090451

PATIENT
  Age: 59 Year
  Sex: Female

DRUGS (9)
  1. TRILEPTAL [Suspect]
     Indication: SPINAL PAIN
     Dosage: 4 DF, DAILY
     Route: 048
     Dates: start: 2006, end: 20130529
  2. TRILEPTAL [Suspect]
     Dosage: 6 DF, DALIY
     Route: 048
     Dates: start: 20130529, end: 20130531
  3. TRILEPTAL [Suspect]
     Dosage: 5 DF, DAILY
     Route: 048
     Dates: start: 20130601, end: 20130611
  4. TRILEPTAL [Suspect]
     Dosage: 3 DF, DAILY
     Route: 048
  5. THERALENE [Suspect]
     Dosage: 2 DF, DAILY
     Route: 048
     Dates: start: 20130506
  6. MOCLAMINE [Concomitant]
     Indication: DEPRESSION
     Dosage: 150 MG, QD
     Route: 048
     Dates: start: 2006
  7. DEPAMIDE [Concomitant]
     Indication: AFFECTIVE DISORDER
     Dosage: 2 DF, DAILY
     Route: 048
     Dates: start: 2006
  8. DAFALGAN [Concomitant]
     Dosage: 6 DF, DAILY
     Route: 048
     Dates: start: 20130506
  9. ATARAX//HYDROXYZINE [Concomitant]
     Indication: ANXIETY
     Dosage: 2 DF, DAILY
     Route: 048
     Dates: start: 2006

REACTIONS (3)
  - Inappropriate antidiuretic hormone secretion [Recovered/Resolved]
  - Hyponatraemia [Recovered/Resolved]
  - Dizziness [Recovered/Resolved]
